FAERS Safety Report 12798585 (Version 1)
Quarter: 2016Q3

REPORT INFORMATION
  Report Type: Report from Study
  Country: JP (occurrence: JP)
  Receive Date: 20160930
  Receipt Date: 20160930
  Transmission Date: 20161109
  Serious: Yes (Hospitalization)
  Sender: FDA-Public Use
  Company Number: JP-JNJFOC-20100601644

PATIENT
  Age: 32 Year
  Sex: Male
  Weight: 53 kg

DRUGS (24)
  1. CICLOSPORIN [Concomitant]
     Active Substance: CYCLOSPORINE
     Indication: PSORIASIS
     Route: 048
  2. TOPSYM [Concomitant]
     Indication: PSORIASIS
     Dosage: ROUTE: OD
     Route: 047
  3. CHLORPROMAZINE AND PROMETHAZINE [Concomitant]
     Active Substance: CHLORPROMAZINE\PROMETHAZINE
     Indication: DEPRESSION
     Dosage: DOSE: 2 DF
     Route: 048
  4. HYDROCORTISONE BUTYRATE. [Concomitant]
     Active Substance: HYDROCORTISONE BUTYRATE
     Indication: PSORIASIS
     Dosage: ROUTE: OD
     Route: 047
  5. REMICADE [Suspect]
     Active Substance: INFLIXIMAB
     Indication: PSORIATIC ARTHROPATHY
     Route: 042
     Dates: start: 20100308, end: 20100308
  6. PYRETHIA [Concomitant]
     Active Substance: PROMETHAZINE HYDROCHLORIDE
     Indication: INSOMNIA
     Route: 048
  7. PAXIL [Concomitant]
     Active Substance: PAROXETINE HYDROCHLORIDE
     Indication: DEPRESSION
     Route: 048
  8. REMICADE [Suspect]
     Active Substance: INFLIXIMAB
     Indication: PSORIATIC ARTHROPATHY
     Route: 042
     Dates: start: 20100323, end: 20100323
  9. SILECE [Concomitant]
     Active Substance: FLUNITRAZEPAM
     Indication: INSOMNIA
     Route: 048
  10. VITAMIN D3 [Concomitant]
     Active Substance: CHOLECALCIFEROL
     Indication: PSORIASIS
  11. NORVASC [Concomitant]
     Active Substance: AMLODIPINE BESYLATE
     Indication: HYPERTENSION
     Route: 048
  12. DOVONEX [Concomitant]
     Active Substance: CALCIPOTRIENE
     Indication: PSORIASIS
     Route: 047
  13. MYSER [Concomitant]
     Active Substance: DIFLUPREDNATE
     Indication: PSORIASIS
     Dosage: ROUTE: OD
     Route: 047
  14. ALLELOCK [Concomitant]
     Active Substance: OLOPATADINE HYDROCHLORIDE
     Indication: PSORIASIS
     Route: 048
  15. TETRAMIDE [Concomitant]
     Active Substance: MIANSERIN
     Indication: DEPRESSION
     Route: 048
  16. HUMIRA [Concomitant]
     Active Substance: ADALIMUMAB
     Route: 058
     Dates: start: 20100624
  17. PREDONINE [Concomitant]
     Active Substance: PREDNISOLONE\PREDNISOLONE ACETATE\PREDNISOLONE SODIUM SUCCINATE
     Route: 048
     Dates: start: 20100601, end: 20100622
  18. REMICADE [Suspect]
     Active Substance: INFLIXIMAB
     Indication: PSORIASIS
     Route: 042
     Dates: start: 20100420, end: 20100420
  19. PURSENNID [Concomitant]
     Active Substance: SENNOSIDES A AND B
     Indication: CONSTIPATION
     Dosage: ON DEMAND USE
     Route: 048
  20. REMICADE [Suspect]
     Active Substance: INFLIXIMAB
     Indication: PSORIATIC ARTHROPATHY
     Route: 042
     Dates: start: 20100420, end: 20100420
  21. REMICADE [Suspect]
     Active Substance: INFLIXIMAB
     Indication: PSORIASIS
     Route: 042
     Dates: start: 20100323, end: 20100323
  22. REMICADE [Suspect]
     Active Substance: INFLIXIMAB
     Indication: PSORIASIS
     Route: 042
     Dates: start: 20100308, end: 20100308
  23. HYDROCORTISONE BUTYRATE. [Concomitant]
     Active Substance: HYDROCORTISONE BUTYRATE
     Indication: PSORIASIS
  24. ISCOTIN [Concomitant]
     Active Substance: ISONIAZID
     Indication: ANTIBIOTIC PROPHYLAXIS
     Dates: start: 20100307, end: 20100528

REACTIONS (3)
  - Oropharyngeal pain [Unknown]
  - Pyrexia [Unknown]
  - Pharyngitis [Recovered/Resolved]

NARRATIVE: CASE EVENT DATE: 20100517
